FAERS Safety Report 6934091-0 (Version None)
Quarter: 2010Q3

REPORT INFORMATION
  Report Type: 
  Country: None (occurrence: None)
  Receive Date: 20100820
  Receipt Date: 20100808
  Transmission Date: 20110219
  Serious: Yes (Hospitalization, Other)
  Sender: FDA-Public Use
  Company Number: US-SANOFI-AVENTIS-2010SA048016

PATIENT
  Sex: Female
  Weight: 49.89 kg

DRUGS (3)
  1. DDAVP [Suspect]
     Indication: DIABETES INSIPIDUS
     Route: 045
  2. DDAVP [Suspect]
     Route: 065
  3. DDAVP [Suspect]
     Route: 065

REACTIONS (11)
  - DRUG DEPENDENCE [None]
  - ENCEPHALITIS HERPES [None]
  - ERYTHEMA [None]
  - GASTROINTESTINAL HYPOMOTILITY [None]
  - HAEMORRHAGE [None]
  - HYPERNATRAEMIA [None]
  - ILL-DEFINED DISORDER [None]
  - NERVOUS SYSTEM DISORDER [None]
  - POLLAKIURIA [None]
  - RECTAL PROLAPSE [None]
  - TREMOR [None]
